FAERS Safety Report 26087951 (Version 2)
Quarter: 2025Q4

REPORT INFORMATION
  Report Type: Report from Study
  Country: US (occurrence: US)
  Receive Date: 20251125
  Receipt Date: 20251223
  Transmission Date: 20260119
  Serious: Yes (Other)
  Sender: PTC THERAPEUTICS
  Company Number: US-PTC THERAPEUTICS INC.-US-2025PTC001242

PATIENT
  Age: 24 Year
  Sex: Female

DRUGS (2)
  1. SEPHIENCE [Suspect]
     Active Substance: SEPIAPTERIN
     Indication: Product used for unknown indication
     Dosage: 4500 MG (62 MG/KG) , QD WITH APPLE JUICE/ APPLE SAUCE
     Route: 048
     Dates: start: 20250829
  2. PROZAC [Concomitant]
     Active Substance: FLUOXETINE HYDROCHLORIDE
     Indication: Product used for unknown indication
     Dosage: 40 MG

REACTIONS (3)
  - Abortion spontaneous [Unknown]
  - Amino acid level increased [Recovering/Resolving]
  - Pregnancy [Recovered/Resolved]

NARRATIVE: CASE EVENT DATE: 20251101
